FAERS Safety Report 19749157 (Version 1)
Quarter: 2021Q3

REPORT INFORMATION
  Report Type: Spontaneous
  Country: US (occurrence: US)
  Receive Date: 20210825
  Receipt Date: 20210825
  Transmission Date: 20211014
  Serious: Yes (Other)
  Sender: FDA-Public Use
  Company Number: None

PATIENT
  Age: 67 Year
  Sex: Female
  Weight: 75.6 kg

DRUGS (16)
  1. ASA [Concomitant]
     Active Substance: ASPIRIN
  2. ZYRTEC [Concomitant]
     Active Substance: CETIRIZINE HYDROCHLORIDE
  3. ACETAMINOPHEN. [Concomitant]
     Active Substance: ACETAMINOPHEN
  4. TROKENDI XR [Concomitant]
     Active Substance: TOPIRAMATE
  5. EMGALITY [Concomitant]
     Active Substance: GALCANEZUMAB-GNLM
  6. SLO?MAG (MAGNESIUM CHLORIDE ANHYDROUS) [Concomitant]
     Active Substance: MAGNESIUM CHLORIDE ANHYDROUS
  7. PROPRANOLOL [Concomitant]
     Active Substance: PROPRANOLOL HYDROCHLORIDE
  8. MELOXICAM. [Concomitant]
     Active Substance: MELOXICAM
  9. CRANBERRY TAB [Concomitant]
  10. LORTAB [Concomitant]
     Active Substance: ACETAMINOPHEN\HYDROCODONE BITARTRATE
  11. KLONOPIN [Concomitant]
     Active Substance: CLONAZEPAM
  12. FLAXSEED [Concomitant]
     Active Substance: FLAX SEED
  13. COENZYME Q10 [Concomitant]
     Active Substance: DIETARY SUPPLEMENT\UBIDECARENONE
  14. VITAMIN D3 [Concomitant]
     Active Substance: CHOLECALCIFEROL
  15. NURTEC ODT [Suspect]
     Active Substance: RIMEGEPANT SULFATE
     Indication: MIGRAINE
     Dosage: ?          QUANTITY:1 TABLET(S);?
     Route: 060
     Dates: start: 20210501, end: 20210825
  16. PHENERGAN [Concomitant]
     Active Substance: PROMETHAZINE HYDROCHLORIDE

REACTIONS (9)
  - Pruritus [None]
  - Dizziness [None]
  - Loss of consciousness [None]
  - Hypersensitivity [None]
  - Nausea [None]
  - Abdominal pain upper [None]
  - Gastrooesophageal reflux disease [None]
  - Product substitution issue [None]
  - Chest pain [None]

NARRATIVE: CASE EVENT DATE: 20210824
